FAERS Safety Report 5508874-8 (Version None)
Quarter: 2007Q4

REPORT INFORMATION
  Report Type: 
  Country: None (occurrence: None)
  Receive Date: 20071105
  Receipt Date: 20071105
  Transmission Date: 20080405
  Serious: Yes (Other)
  Sender: FDA-Public Use
  Company Number: None

PATIENT
  Age: 52 Year
  Sex: Female
  Weight: 70.7611 kg

DRUGS (1)
  1. AZATHIOPRINE [Suspect]
     Indication: MYASTHENIA GRAVIS
     Dosage: 150 MG PO QDAY
     Dates: start: 20070301, end: 20071001

REACTIONS (2)
  - ANOREXIA [None]
  - DYSGEUSIA [None]
